FAERS Safety Report 5170187-4 (Version None)
Quarter: 2006Q4

REPORT INFORMATION
  Report Type: 
  Country: None (occurrence: None)
  Receive Date: 20061204
  Receipt Date: 20061127
  Transmission Date: 20070319
  Serious: Yes (Other)
  Sender: FDA-Public Use
  Company Number: 2006146947

PATIENT
  Age: 78 Year
  Sex: Female

DRUGS (3)
  1. NORVASC [Suspect]
     Dosage: 370 MG, ORAL
     Route: 048
  2. ANTIHYPERTENSIVES (ANTIHYPERTENSIVES) [Suspect]
  3. OTHER ANALGESICS AND ANTIPYRETICS (OTHER ANALGESICS AND ANTIPYRETICS) [Suspect]

REACTIONS (7)
  - BLOOD PRESSURE DECREASED [None]
  - HEPATIC FUNCTION ABNORMAL [None]
  - MULTIPLE DRUG OVERDOSE INTENTIONAL [None]
  - OEDEMA [None]
  - OLIGURIA [None]
  - RENAL IMPAIRMENT [None]
  - SUICIDE ATTEMPT [None]
